FAERS Safety Report 7899048-4 (Version None)
Quarter: 2011Q4

REPORT INFORMATION
  Report Type: 
  Country: None (occurrence: None)
  Receive Date: 20111107
  Receipt Date: 20111028
  Transmission Date: 20120403
  Serious: Yes (Hospitalization, Other)
  Sender: FDA-Public Use
  Company Number: CA-ROCHE-748613

PATIENT
  Sex: Female
  Weight: 65.8 kg

DRUGS (13)
  1. ERGOCALCIFEROL [Concomitant]
     Dosage: 1000 UNIT/ DAY
  2. PLAQUENIL [Concomitant]
     Dosage: REPORTED AS 2 TABS ONCE A DAY.
  3. NAPROSYN [Concomitant]
  4. ACTONEL [Concomitant]
  5. PREDNISONE [Concomitant]
  6. LEFLUNOMIDE [Concomitant]
  7. CALCIUM [Concomitant]
  8. LOSEC (CANADA) [Concomitant]
     Dates: start: 20110614
  9. ACTEMRA [Suspect]
     Route: 042
  10. CELEBREX [Concomitant]
  11. OMEPRAZOLE [Concomitant]
  12. ACTEMRA [Suspect]
     Indication: RHEUMATOID ARTHRITIS
     Dosage: 200MG/10ML VIAL
     Route: 042
  13. TYLENOL-500 [Concomitant]
     Dosage: REPORTED AS PM. DRUG REPORTED AS TYLENOL WICODEINE NO 3

REACTIONS (6)
  - DEHYDRATION [None]
  - URINARY TRACT INFECTION [None]
  - DIVERTICULITIS [None]
  - RENAL FAILURE ACUTE [None]
  - TENDON RUPTURE [None]
  - RENAL FAILURE [None]
